FAERS Safety Report 8963478 (Version 2)
Quarter: 2013Q1

REPORT INFORMATION
  Report Type: Report from Study
  Country: US (occurrence: US)
  Receive Date: 20121214
  Receipt Date: 20130130
  Transmission Date: 20140127
  Serious: Yes (Life-Threatening, Hospitalization)
  Sender: FDA-Public Use
  Company Number: US-JNJFOC-20121204061

PATIENT
  Age: 61 Year
  Sex: Female
  Weight: 68 kg

DRUGS (17)
  1. GOLIMUMAB [Suspect]
     Indication: RHEUMATOID ARTHRITIS
     Dates: start: 20120120
  2. GOLIMUMAB [Suspect]
     Indication: RHEUMATOID ARTHRITIS
     Dates: start: 20121121
  3. CYMBALTA [Concomitant]
     Route: 048
  4. METHOTREXATE [Concomitant]
     Indication: RHEUMATOID ARTHRITIS
     Route: 048
  5. ASPIRIN [Concomitant]
     Indication: PROPHYLAXIS
     Route: 048
     Dates: end: 20120916
  6. RELAFEN [Concomitant]
     Indication: ARTHRALGIA
     Route: 048
     Dates: start: 20111115
  7. VITAMIN D [Concomitant]
     Route: 048
  8. CALTRATE [Concomitant]
     Route: 048
  9. TOCOPHEROL [Concomitant]
     Route: 048
  10. NIACIN [Concomitant]
     Route: 048
  11. OMEPRAZOLE [Concomitant]
     Indication: ABDOMINAL DISCOMFORT
     Route: 048
  12. VITAMIN B COMPLEX [Concomitant]
     Route: 048
  13. PROBIOTIC [Concomitant]
     Route: 048
  14. GARLIC [Concomitant]
     Route: 048
  15. VICODIN [Concomitant]
     Indication: ARTHRALGIA
     Route: 048
     Dates: start: 20120318, end: 20120916
  16. VITAMIN C [Concomitant]
     Route: 048
  17. COQ10 [Concomitant]
     Route: 048

REACTIONS (2)
  - Carotid artery occlusion [Not Recovered/Not Resolved]
  - Aneurysm [Recovered/Resolved]
